FAERS Safety Report 8444814-X (Version None)
Quarter: 2012Q2

REPORT INFORMATION
  Report Type: 
  Country: None (occurrence: None)
  Receive Date: 20120618
  Receipt Date: 20120613
  Transmission Date: 20120825
  Serious: Yes (Hospitalization, Other)
  Sender: FDA-Public Use
  Company Number: PHHY2012MX051178

PATIENT
  Sex: Female

DRUGS (8)
  1. DILTIAZEM HYDROCHOLORIDE [Concomitant]
     Indication: HYPERTENSION
     Dosage: 120 MG DAILY
  2. ZOLEDRONOC ACID [Suspect]
     Indication: OSTEOPOROSIS
     Dosage: 5MG/100 ML EACH YEAR
     Route: 042
  3. AVAPRO [Concomitant]
     Indication: HYPERTENSION
     Dosage: 1 DF, DAILY
  4. VIDAXIL [Concomitant]
     Indication: ARRHYTHMIA
     Dosage: 1 DF,DAILY
  5. FUROSEMIDE [Concomitant]
     Dosage: 20 MG DAILY ONLY THURSDAY AND SATURDAY
  6. PLAVIX [Concomitant]
     Indication: CARDIAC DISORDER
     Dosage: 1 DF, DAILY
  7. ZOLEDRONOC ACID [Suspect]
     Dosage: 5MG/100 ML EACH YEAR
     Route: 042
  8. VIVITAR [Concomitant]
     Indication: HYPERTENSION
     Dosage: HALF  TABLET ON MONDAY,  WEDNESDAY AND FRIDAY
     Route: 048

REACTIONS (3)
  - BLOOD PRESSURE INADEQUATELY CONTROLLED [None]
  - CARDIAC DISORDER [None]
  - MALAISE [None]
